FAERS Safety Report 8308753-7 (Version None)
Quarter: 2012Q2

REPORT INFORMATION
  Report Type: 
  Country: None (occurrence: None)
  Receive Date: 20120424
  Receipt Date: 20110802
  Transmission Date: 20120825
  Serious: Yes (Hospitalization)
  Sender: FDA-Public Use
  Company Number: IT-EISAI INC-E7273-00301-SPO-IT

PATIENT
  Sex: Male

DRUGS (1)
  1. TARGRETIN [Suspect]
     Route: 048
     Dates: start: 20110729, end: 20110801

REACTIONS (4)
  - FIBRIN D DIMER INCREASED [None]
  - PAIN [None]
  - TRANSAMINASES INCREASED [None]
  - SKIN EXFOLIATION [None]
